FAERS Safety Report 11277154 (Version 1)
Quarter: 2015Q3

REPORT INFORMATION
  Report Type: Other
  Country: GB (occurrence: GB)
  Receive Date: 20150716
  Receipt Date: 20150716
  Transmission Date: 20151125
  Serious: Yes (Other)
  Sender: FDA-Public Use
  Company Number: GB-PERRIGO-15GB007270

PATIENT

DRUGS (1)
  1. LORATADINE 16028/0080 10 MG [Suspect]
     Active Substance: LORATADINE
     Indication: SNEEZING
     Dosage: UNK
     Route: 048
     Dates: start: 20150703, end: 20150704

REACTIONS (3)
  - Fatigue [Recovering/Resolving]
  - Dizziness [Recovering/Resolving]
  - Malaise [Recovering/Resolving]

NARRATIVE: CASE EVENT DATE: 20150704
